FAERS Safety Report 8053540-0 (Version None)
Quarter: 2012Q1

REPORT INFORMATION
  Report Type: 
  Country: None (occurrence: None)
  Receive Date: 20120118
  Receipt Date: 20120113
  Transmission Date: 20120608
  Serious: Yes (Hospitalization)
  Sender: FDA-Public Use
  Company Number: US-ALEXION-A201101793

PATIENT
  Sex: Female

DRUGS (3)
  1. SOLIRIS [Suspect]
     Indication: PAROXYSMAL NOCTURNAL HAEMOGLOBINURIA
     Dosage: UNK
     Route: 042
     Dates: start: 20111109
  2. PENICILLIN VK [Concomitant]
  3. SOLIRIS [Suspect]
     Dosage: 1200 MG, UNK
     Route: 042
     Dates: start: 20111206

REACTIONS (3)
  - HAEMOGLOBIN DECREASED [None]
  - BLOOD LACTATE DEHYDROGENASE INCREASED [None]
  - MENINGOCOCCAL BACTERAEMIA [None]
